FAERS Safety Report 6497112-8 (Version None)
Quarter: 2009Q4

REPORT INFORMATION
  Report Type: 
  Country: None (occurrence: None)
  Receive Date: 20091215
  Receipt Date: 20090318
  Transmission Date: 20100525
  Serious: No
  Sender: FDA-Public Use
  Company Number: A0774021A

PATIENT
  Age: 84 Year
  Sex: Male

DRUGS (2)
  1. AVODART [Suspect]
     Indication: PROSTATIC SPECIFIC ANTIGEN
     Dosage: 1CAP PER DAY
     Route: 048
  2. LISINOPRIL [Concomitant]

REACTIONS (1)
  - MUSCULOSKELETAL CHEST PAIN [None]
